FAERS Safety Report 9717429 (Version 1)
Quarter: 2013Q4

REPORT INFORMATION
  Report Type: Spontaneous
  Country: US (occurrence: US)
  Receive Date: 20131127
  Receipt Date: 20131127
  Transmission Date: 20140711
  Serious: No
  Sender: FDA-Public Use
  Company Number: US-PFIZER INC-2013335111

PATIENT
  Age: 70 Year
  Sex: Female
  Weight: 47.62 kg

DRUGS (2)
  1. ZITHROMAX [Suspect]
     Indication: SINUSITIS
     Dosage: UNK, 1X/DAY
     Route: 048
  2. ZITHROMAX [Suspect]
     Dosage: UNK, 1X/DAY
     Route: 048
     Dates: start: 201305, end: 201306

REACTIONS (2)
  - Dyspnoea [Unknown]
  - Rash pruritic [Recovered/Resolved]
